FAERS Safety Report 6554074-2 (Version None)
Quarter: 2010Q1

REPORT INFORMATION
  Report Type: 
  Country: None (occurrence: None)
  Receive Date: 20100125
  Receipt Date: 20100125
  Transmission Date: 20100710
  Serious: No
  Sender: FDA-Public Use
  Company Number: None

PATIENT
  Age: 58 Year
  Sex: Male
  Weight: 104.3 kg

DRUGS (1)
  1. LEVITIRACETAM [Suspect]
     Indication: CONVULSION
     Dosage: 1500 MG BID PO
     Route: 048
     Dates: start: 20091214, end: 20100111

REACTIONS (6)
  - CONVULSION [None]
  - LOSS OF CONSCIOUSNESS [None]
  - MOOD ALTERED [None]
  - POST PROCEDURAL COMPLICATION [None]
  - PRODUCT SUBSTITUTION ISSUE [None]
  - RESPIRATORY ARREST [None]
